FAERS Safety Report 21589684 (Version 1)
Quarter: 2022Q4

REPORT INFORMATION
  Report Type: Spontaneous
  Country: CA (occurrence: CA)
  Receive Date: 20221114
  Receipt Date: 20221114
  Transmission Date: 20230113
  Serious: Yes (Hospitalization, Other)
  Sender: FDA-Public Use
  Company Number: CA-MLMSERVICE-20221018-3866237-1

PATIENT
  Age: 68 Year
  Sex: Male

DRUGS (1)
  1. METHOTREXATE [Suspect]
     Active Substance: METHOTREXATE
     Indication: Non-Hodgkin^s lymphoma
     Dosage: 3.4 G/M2,CUMULATIVE DOSE- 7400 MG
     Route: 042

REACTIONS (3)
  - Drug clearance decreased [Recovered/Resolved]
  - Renal failure [Recovered/Resolved]
  - Toxicity to various agents [Unknown]
